FAERS Safety Report 4920638-2 (Version None)
Quarter: 2006Q1

REPORT INFORMATION
  Report Type: 
  Country: None (occurrence: None)
  Receive Date: 20060113
  Receipt Date: 20051012
  Transmission Date: 20060701
  Serious: No
  Sender: FDA-Public Use
  Company Number: 2005SP003499

PATIENT
  Age: 54 Year
  Sex: Female
  Weight: 50.8029 kg

DRUGS (5)
  1. LUNESTA [Suspect]
     Indication: INSOMNIA
     Dosage: HS;ORAL
     Route: 048
     Dates: start: 20050101, end: 20050101
  2. SPORANOX [Concomitant]
  3. DUONEB [Concomitant]
  4. PERCOCET [Concomitant]
  5. UNSPECIFIED COUGH MEDICINE [Concomitant]

REACTIONS (1)
  - NIGHTMARE [None]
